FAERS Safety Report 9633198 (Version 1)
Quarter: 2013Q4

REPORT INFORMATION
  Report Type: Spontaneous
  Country: US (occurrence: None)
  Receive Date: 20131018
  Receipt Date: 20131018
  Transmission Date: 20140711
  Serious: Yes (Hospitalization)
  Sender: FDA-Public Use
  Company Number: None

PATIENT
  Age: 66 Year
  Sex: Male
  Weight: 78 kg

DRUGS (11)
  1. PLAVIX [Suspect]
     Route: 048
  2. ASPIRIN [Suspect]
     Route: 048
  3. ALLOPURINOL [Concomitant]
  4. GLUCOSAMIE CHONDROITIN [Concomitant]
  5. LASIX [Concomitant]
  6. LISINOPRIL [Concomitant]
  7. NITROGLYCERIN [Concomitant]
  8. OMEPRAZOLE [Concomitant]
  9. PROBIOTIC [Concomitant]
  10. SIMVASTATIN [Concomitant]
  11. ZETIA [Concomitant]

REACTIONS (4)
  - Syncope [None]
  - Ventricular tachycardia [None]
  - Myocardial infarction [None]
  - Thrombosis in device [None]
